FAERS Safety Report 19455500 (Version 1)
Quarter: 2021Q2

REPORT INFORMATION
  Report Type: Spontaneous
  Country: US (occurrence: US)
  Receive Date: 20210624
  Receipt Date: 20210624
  Transmission Date: 20210717
  Serious: Yes (Hospitalization)
  Sender: FDA-Public Use
  Company Number: None

PATIENT
  Age: 17 Year
  Sex: Female
  Weight: 47.4 kg

DRUGS (2)
  1. ETOPOSIDE (VP?16) [Suspect]
     Active Substance: ETOPOSIDE
     Dates: end: 20210525
  2. CYTARABINE. [Suspect]
     Active Substance: CYTARABINE
     Dates: end: 20210525

REACTIONS (7)
  - Respiratory failure [None]
  - Fluid overload [None]
  - Hypoxia [None]
  - Tachycardia [None]
  - Tachypnoea [None]
  - Hypertension [None]
  - Inflammation [None]

NARRATIVE: CASE EVENT DATE: 20210615
